FAERS Safety Report 16728895 (Version 1)
Quarter: 2019Q3

REPORT INFORMATION
  Report Type: Spontaneous
  Country: US (occurrence: US)
  Receive Date: 20190822
  Receipt Date: 20190822
  Transmission Date: 20191005
  Serious: No
  Sender: FDA-Public Use
  Company Number: US-MALLINCKRODT-T201804028

PATIENT
  Sex: Female

DRUGS (1)
  1. OXYCODONE [Suspect]
     Active Substance: OXYCODONE
     Indication: PAIN
     Dosage: UNK
     Route: 065

REACTIONS (6)
  - Feeling cold [Unknown]
  - Insomnia [Unknown]
  - Drug ineffective [Unknown]
  - Chills [Unknown]
  - Withdrawal syndrome [Unknown]
  - Feeling jittery [Unknown]
